FAERS Safety Report 11714601 (Version 1)
Quarter: 2015Q4

REPORT INFORMATION
  Report Type: Spontaneous
  Country: US (occurrence: None)
  Receive Date: 20151106
  Receipt Date: 20151106
  Transmission Date: 20160304
  Serious: Yes (Hospitalization)
  Sender: FDA-Public Use
  Company Number: None

PATIENT
  Age: 41 Year
  Sex: Female
  Weight: 67.13 kg

DRUGS (7)
  1. ZOLPIDEM [Concomitant]
     Active Substance: ZOLPIDEM\ZOLPIDEM TARTRATE
  2. EXJADE [Suspect]
     Active Substance: DEFERASIROX
     Indication: HEREDITARY HAEMOCHROMATOSIS
     Route: 048
     Dates: start: 20150508
  3. SYMBICORT [Suspect]
     Active Substance: BUDESONIDE\FORMOTEROL FUMARATE DIHYDRATE
  4. OXYCODONE [Concomitant]
     Active Substance: OXYCODONE
  5. INVEGA [Concomitant]
     Active Substance: PALIPERIDONE
  6. FUROSEMIDE. [Concomitant]
     Active Substance: FUROSEMIDE
  7. OXYCONTIN [Suspect]
     Active Substance: OXYCODONE HYDROCHLORIDE

REACTIONS (2)
  - Drug dose omission [None]
  - Sickle cell anaemia [None]
